FAERS Safety Report 23505954 (Version 1)
Quarter: 2024Q1

REPORT INFORMATION
  Report Type: Spontaneous
  Country: US (occurrence: None)
  Receive Date: 20240208
  Receipt Date: 20240208
  Transmission Date: 20240409
  Serious: Yes (Other)
  Sender: FDA-Public Use
  Company Number: None

PATIENT
  Age: 74 Year
  Sex: Female
  Weight: 89.1 kg

DRUGS (1)
  1. RECLAST [Suspect]
     Active Substance: ZOLEDRONIC ACID
     Indication: Osteoporosis
     Dosage: OTHER QUANTITY : 1 INJECTION(S);?
     Route: 042
     Dates: start: 20240111, end: 20240111

REACTIONS (5)
  - Depression [None]
  - Arthralgia [None]
  - Arthralgia [None]
  - Pain [None]
  - Weight increased [None]

NARRATIVE: CASE EVENT DATE: 20240119
